FAERS Safety Report 23833646 (Version 8)
Quarter: 2025Q3

REPORT INFORMATION
  Report Type: Report from Study
  Country: US (occurrence: US)
  Receive Date: 20240508
  Receipt Date: 20250731
  Transmission Date: 20251020
  Serious: Yes (Other)
  Sender: ABBVIE
  Company Number: US-ABBVIE-5749212

PATIENT
  Age: 67 Year
  Sex: Male
  Weight: 77 kg

DRUGS (3)
  1. SKYRIZI [Suspect]
     Active Substance: RISANKIZUMAB-RZAA
     Indication: Crohn^s disease
     Route: 058
     Dates: start: 20240126
  2. SKYRIZI [Suspect]
     Active Substance: RISANKIZUMAB-RZAA
     Route: 058
     Dates: start: 20231002
  3. SKYRIZI [Suspect]
     Active Substance: RISANKIZUMAB-RZAA
     Route: 058

REACTIONS (15)
  - Cerebrovascular accident [Recovered/Resolved]
  - Blood pressure abnormal [Unknown]
  - Memory impairment [Not Recovered/Not Resolved]
  - Speech disorder [Unknown]
  - Walking aid user [Unknown]
  - Pain in extremity [Unknown]
  - Gait inability [Unknown]
  - Cerebrovascular accident [Recovering/Resolving]
  - Myalgia [Unknown]
  - Injection site haemorrhage [Recovered/Resolved]
  - Cerebrovascular accident [Recovered/Resolved]
  - Gait disturbance [Not Recovered/Not Resolved]
  - Transient ischaemic attack [Unknown]
  - Fatigue [Unknown]
  - Skin exfoliation [Recovering/Resolving]

NARRATIVE: CASE EVENT DATE: 20230101
